FAERS Safety Report 5231231-9 (Version None)
Quarter: 2007Q1

REPORT INFORMATION
  Report Type: 
  Country: None (occurrence: None)
  Receive Date: 20070206
  Receipt Date: 20070130
  Transmission Date: 20070707
  Serious: Yes (Hospitalization)
  Sender: FDA-Public Use
  Company Number: US-JNJFOC-20070200117

PATIENT
  Sex: Female
  Weight: 55.34 kg

DRUGS (2)
  1. DURAGESIC-100 [Suspect]
     Indication: PAIN
     Route: 062
  2. ISORDIL [Concomitant]
     Route: 048

REACTIONS (1)
  - SPINAL FUSION SURGERY [None]
